FAERS Safety Report 4355253-5 (Version None)
Quarter: 2004Q2

REPORT INFORMATION
  Report Type: 
  Country: None (occurrence: None)
  Receive Date: 20040504
  Receipt Date: 20040423
  Transmission Date: 20050107
  Serious: No
  Sender: FDA-Public Use
  Company Number: 2004SE02326

PATIENT
  Age: 75 Year
  Sex: Male

DRUGS (8)
  1. BLOPRESS [Suspect]
     Indication: HYPERTENSION
     Dosage: 8 MG PRN PO
     Route: 048
     Dates: start: 20031205, end: 20040326
  2. BLOPRESS [Suspect]
     Indication: HYPERTENSION
     Dosage: 8 MG QD PO
     Route: 048
     Dates: start: 20040327, end: 20040329
  3. BLOPRESS [Suspect]
     Indication: HYPERTENSION
  4. PROHEPAR [Concomitant]
  5. URSODEOXYCHOLIC ACID [Concomitant]
  6. NIFEDIPINE [Concomitant]
  7. GLYCEROL 2.6% [Concomitant]
  8. TAMSULOSIN HYDROCHLORIDE [Concomitant]

REACTIONS (6)
  - BLOOD PRESSURE SYSTOLIC DECREASED [None]
  - BLOOD PRESSURE SYSTOLIC INCREASED [None]
  - COMA [None]
  - CONSTIPATION [None]
  - FEELING ABNORMAL [None]
  - SHOCK [None]
